FAERS Safety Report 4694968-6 (Version None)
Quarter: 2005Q2

REPORT INFORMATION
  Report Type: 
  Country: None (occurrence: None)
  Receive Date: 20050617
  Receipt Date: 20040809
  Transmission Date: 20051028
  Serious: Yes (Hospitalization)
  Sender: FDA-Public Use
  Company Number: US-2004-030166

PATIENT
  Age: 84 Year
  Sex: Male

DRUGS (1)
  1. FLUDARA [Suspect]
     Indication: LYMPHOMA
     Dosage: 1 CYCLES, INTRAVENOUS
     Route: 042
     Dates: start: 20020101, end: 20020101

REACTIONS (2)
  - OEDEMA [None]
  - PNEUMONIA [None]
